FAERS Safety Report 25017450 (Version 1)
Quarter: 2025Q1

REPORT INFORMATION
  Report Type: Spontaneous
  Country: US (occurrence: None)
  Receive Date: 20250227
  Receipt Date: 20250227
  Transmission Date: 20250408
  Serious: Yes (Death, Hospitalization)
  Sender: FDA-CTU
  Company Number: None

PATIENT
  Age: 83 Year
  Sex: Male
  Weight: 59.9 kg

DRUGS (11)
  1. GEMCITABINE HYDROCHLORIDE [Suspect]
     Active Substance: GEMCITABINE HYDROCHLORIDE
  2. PACLITAXEL [Suspect]
     Active Substance: PACLITAXEL
  3. 0.9% Sodium Chloride Solution [Concomitant]
  4. AMLODIPINE [Concomitant]
     Active Substance: AMLODIPINE BESYLATE
  5. CIPROFLOXACIN [Concomitant]
     Active Substance: CIPROFLOXACIN
  6. FINASTERIDE [Concomitant]
     Active Substance: FINASTERIDE
  7. HYDROCHLOROTHIAZIDE [Concomitant]
     Active Substance: HYDROCHLOROTHIAZIDE
  8. ACETAMINOPHEN\HYDROCODONE [Concomitant]
     Active Substance: ACETAMINOPHEN\HYDROCODONE
  9. LISINOPRIL [Concomitant]
     Active Substance: LISINOPRIL
  10. POLYETHYLENE GLYCOL [Concomitant]
     Active Substance: POLYETHYLENE GLYCOL
  11. VANCOMYCIN [Concomitant]
     Active Substance: VANCOMYCIN

REACTIONS (30)
  - Anaemia [None]
  - Transfusion [None]
  - Sepsis [None]
  - Blood lactic acid increased [None]
  - Troponin I increased [None]
  - Blood glucose increased [None]
  - Aspartate aminotransferase increased [None]
  - Blood alkaline phosphatase increased [None]
  - Blood bilirubin increased [None]
  - Atrial fibrillation [None]
  - Ventricular extrasystoles [None]
  - Bundle branch block right [None]
  - Bundle branch block left [None]
  - Aortic arteriosclerosis [None]
  - Abdominal pain upper [None]
  - Pulmonary embolism [None]
  - Pleural effusion [None]
  - Lung consolidation [None]
  - Atelectasis [None]
  - Superinfection [None]
  - Neoplasm [None]
  - Pleural fibrosis [None]
  - Lymphadenopathy mediastinal [None]
  - Pancreatic carcinoma metastatic [None]
  - Metastases to liver [None]
  - Post procedural complication [None]
  - Bladder hypertrophy [None]
  - Abdominal mass [None]
  - Gallbladder disorder [None]
  - Cardiac arrest [None]

NARRATIVE: CASE EVENT DATE: 20211106
